FAERS Safety Report 13135973 (Version 6)
Quarter: 2017Q3

REPORT INFORMATION
  Report Type: Spontaneous
  Country: KR (occurrence: KR)
  Receive Date: 20170120
  Receipt Date: 20170830
  Transmission Date: 20171127
  Serious: Yes (Hospitalization, Other)
  Sender: FDA-Public Use
  Company Number: KR-009507513-1701KOR008833

PATIENT
  Age: 72 Year
  Sex: Male
  Weight: 57 kg

DRUGS (33)
  1. EMEND (FOSAPREPITANT DIMEGLUMINE) [Suspect]
     Active Substance: FOSAPREPITANT DIMEGLUMINE
     Indication: PROPHYLAXIS OF NAUSEA AND VOMITING
     Dosage: 150 MG, ONCE
     Route: 042
     Dates: start: 20160803, end: 20160803
  2. EMEND (FOSAPREPITANT DIMEGLUMINE) [Suspect]
     Active Substance: FOSAPREPITANT DIMEGLUMINE
     Dosage: 150 MG, ONCE
     Route: 042
     Dates: start: 20161024, end: 20161024
  3. CISPLATIN. [Concomitant]
     Active Substance: CISPLATIN
     Dosage: 93 MG, ONCE (CYCLE 2), STRENGTH 500MG/100ML
     Route: 042
     Dates: start: 20160824, end: 20160824
  4. EMEND (FOSAPREPITANT DIMEGLUMINE) [Suspect]
     Active Substance: FOSAPREPITANT DIMEGLUMINE
     Dosage: 150 MG, ONCE
     Route: 042
     Dates: start: 20160824, end: 20160824
  5. CISPLATIN. [Concomitant]
     Active Substance: CISPLATIN
     Dosage: 91.28 MG, ONCE ( (CYCLE 3), STRENGTH 500MG/100ML
     Route: 042
     Dates: start: 20161024, end: 20161024
  6. ALIMTA [Concomitant]
     Active Substance: PEMETREXED DISODIUM
     Dosage: 652 MG, ONCE (CYCLE 3)
     Route: 042
     Dates: start: 20161024, end: 20161024
  7. DEXAMETHASONE BUKWANG [Concomitant]
     Dosage: 3.75 MG, BID
     Route: 048
     Dates: start: 20160803, end: 20160805
  8. ALOXI [Concomitant]
     Active Substance: PALONOSETRON HYDROCHLORIDE
     Dosage: 0.25 MG, ONCE
     Route: 042
     Dates: start: 20161024, end: 20161024
  9. LASIX [Concomitant]
     Active Substance: FUROSEMIDE
     Dosage: 20 MG, ONCE , STRENGTH 20MG/2ML
     Route: 042
     Dates: start: 20161024, end: 20161024
  10. STALEVO [Concomitant]
     Active Substance: CARBIDOPA\ENTACAPONE\LEVODOPA
     Dosage: STRENGH: 150/37.5/200 MG, 1 TABLET QD
     Route: 048
     Dates: start: 20160803
  11. DEXAMETHASONE BUKWANG [Concomitant]
     Dosage: 3.75 MG, BID
     Route: 048
     Dates: start: 20160812, end: 20160815
  12. D-MANNITOL DAIHAN [Concomitant]
     Dosage: 100 ML, ONCE
     Route: 042
     Dates: start: 20161024, end: 20161024
  13. SERMION [Concomitant]
     Active Substance: NICERGOLINE
     Indication: PARKINSON^S DISEASE
     Dosage: 1 TABLET, BID
     Route: 048
     Dates: start: 20160803
  14. D-MANNITOL DAIHAN [Concomitant]
     Indication: PROPHYLAXIS
     Dosage: 100 ML, ONCE
     Route: 042
     Dates: start: 20160803, end: 20160803
  15. FOLIC ACID DAEWOO [Concomitant]
     Indication: ANAEMIA PROPHYLAXIS
     Dosage: 1 TABLET, QD
     Route: 048
     Dates: start: 20160725
  16. ALIMTA [Concomitant]
     Active Substance: PEMETREXED DISODIUM
     Indication: LUNG ADENOCARCINOMA
     Dosage: 830 MG, ONCE (CYCLE 1)
     Route: 042
     Dates: start: 20160803, end: 20160803
  17. DEXAMETHASONE BUKWANG [Concomitant]
     Dosage: 3.75 MG, BID
     Route: 048
     Dates: start: 20160824, end: 20160826
  18. DEXAMETHASONE DAEWON [Concomitant]
     Indication: PROPHYLAXIS OF NAUSEA AND VOMITING
     Dosage: 5 MG, ONCE
     Route: 042
     Dates: start: 20160803, end: 20160803
  19. DEXAMETHASONE DAEWON [Concomitant]
     Dosage: 10 MG, ONCE
     Route: 042
     Dates: start: 20161024, end: 20161024
  20. ALOXI [Concomitant]
     Active Substance: PALONOSETRON HYDROCHLORIDE
     Indication: PROPHYLAXIS OF NAUSEA AND VOMITING
     Dosage: 0.25 MG, ONCE
     Route: 042
     Dates: start: 20160803, end: 20160803
  21. MECOBALAMIN PHARMA [Concomitant]
     Indication: PARKINSON^S DISEASE
     Dosage: 1 TABLET, BID
     Route: 048
     Dates: start: 20160803
  22. ALIMTA [Concomitant]
     Active Substance: PEMETREXED DISODIUM
     Dosage: 664 MG, ONCE (CYCLE 2)
     Route: 042
     Dates: start: 20160824, end: 20160824
  23. DEXAMETHASONE BUKWANG [Concomitant]
     Indication: PROPHYLAXIS OF NAUSEA AND VOMITING
     Dosage: 3.75 MG, BID
     Route: 048
     Dates: start: 20160725, end: 20160727
  24. DEXAMETHASONE DAEWON [Concomitant]
     Dosage: 10 MG, ONCE
     Route: 042
     Dates: start: 20160824, end: 20160824
  25. LASIX [Concomitant]
     Active Substance: FUROSEMIDE
     Dosage: 20 MG, ONCE , STRENGTH 20MG/2ML
     Route: 042
     Dates: start: 20160824, end: 20160824
  26. D-MANNITOL DAIHAN [Concomitant]
     Dosage: 100 ML, ONCE
     Route: 042
     Dates: start: 20160824, end: 20160824
  27. BORYUNG ASTRIX [Concomitant]
     Indication: ANTICOAGULANT THERAPY
     Dosage: 1 CAPSULE, QD
     Route: 048
     Dates: start: 20160803
  28. PLETAAL SR [Concomitant]
     Indication: ANTICOAGULANT THERAPY
     Dosage: 1 CAPSULE, BID
     Route: 048
     Dates: start: 20160803
  29. SKAD [Concomitant]
     Active Substance: AMLODIPINE MALEATE
     Indication: PROPHYLAXIS
     Dosage: ONE 5 MG TABLET, QD
     Route: 048
     Dates: start: 20160803
  30. CISPLATIN. [Concomitant]
     Active Substance: CISPLATIN
     Indication: LUNG ADENOCARCINOMA
     Dosage: 116.2 MG, ONCE (CYCLE 1) , STRENGTH 500MG/100ML
     Route: 042
     Dates: start: 20160803, end: 20160803
  31. DEXAMETHASONE BUKWANG [Concomitant]
     Dosage: 3.75 MG, BID
     Route: 048
     Dates: start: 20160907, end: 20160911
  32. ALOXI [Concomitant]
     Active Substance: PALONOSETRON HYDROCHLORIDE
     Dosage: 0.25 MG, ONCE
     Route: 042
     Dates: start: 20160824, end: 20160824
  33. LASIX [Concomitant]
     Active Substance: FUROSEMIDE
     Indication: PROPHYLAXIS
     Dosage: 20 MG, ONCE, STRENGTH 20MG/2ML
     Route: 042
     Dates: start: 20160803, end: 20160803

REACTIONS (1)
  - Seizure like phenomena [Recovered/Resolved]

NARRATIVE: CASE EVENT DATE: 20160824
